FAERS Safety Report 12188384 (Version 1)
Quarter: 2016Q1

REPORT INFORMATION
  Report Type: Spontaneous
  Country: US (occurrence: US)
  Receive Date: 20160317
  Receipt Date: 20160317
  Transmission Date: 20160526
  Serious: No
  Sender: FDA-Public Use
  Company Number: US-HORIZON-DUE-0043-2016

PATIENT
  Age: 62 Year
  Sex: Female

DRUGS (5)
  1. DUEXIS [Suspect]
     Active Substance: FAMOTIDINE\IBUPROFEN
     Indication: MIGRAINE
     Dosage: 3 TIMES DAILY
  2. BABY ASPIRIN [Concomitant]
     Active Substance: ASPIRIN
  3. BUSPAR [Concomitant]
     Active Substance: BUSPIRONE HYDROCHLORIDE
  4. VOLTAREN CREAM [Concomitant]
  5. WELLBUTRIN [Concomitant]
     Active Substance: BUPROPION HYDROCHLORIDE

REACTIONS (2)
  - Therapy cessation [Not Recovered/Not Resolved]
  - Off label use [Unknown]
